FAERS Safety Report 16462724 (Version 1)
Quarter: 2019Q2

REPORT INFORMATION
  Report Type: Spontaneous
  Country: DK (occurrence: DK)
  Receive Date: 20190621
  Receipt Date: 20190621
  Transmission Date: 20190711
  Serious: Yes (Life-Threatening, Hospitalization, Other)
  Sender: FDA-Public Use
  Company Number: DK-GLENMARK PHARMACEUTICALS-2019GMK041738

PATIENT
  Age: 75 Year
  Sex: Female
  Weight: 120 kg

DRUGS (1)
  1. PRAMIPEXOLE DIHYDROCHLORIDE. [Suspect]
     Active Substance: PRAMIPEXOLE DIHYDROCHLORIDE
     Indication: PRODUCT USED FOR UNKNOWN INDICATION
     Dosage: 0.7 MG, TID (EVERY 8 HOURS)
     Route: 065

REACTIONS (5)
  - Dyskinesia [Recovering/Resolving]
  - Blood creatinine increased [Unknown]
  - Product administration error [Unknown]
  - Overdose [Recovering/Resolving]
  - Stereotypy [Recovering/Resolving]
